FAERS Safety Report 10233710 (Version 1)
Quarter: 2014Q2

REPORT INFORMATION
  Report Type: Spontaneous
  Country: AL (occurrence: AL)
  Receive Date: 20140612
  Receipt Date: 20140612
  Transmission Date: 20141212
  Serious: Yes (Death)
  Sender: FDA-Public Use
  Company Number: AL-ACTAVIS-2014-12806

PATIENT
  Age: 42 Year
  Sex: Female

DRUGS (2)
  1. METFORMIN HYDROCHLORIDE (UNKNOWN) [Suspect]
     Indication: TYPE 2 DIABETES MELLITUS
     Dosage: 3 G, DAILY
     Route: 065
  2. BISOPROLOL [Concomitant]
     Indication: HYPERTENSION
     Dosage: 6.5 MG, DAILY
     Route: 065

REACTIONS (4)
  - Lactic acidosis [Fatal]
  - Circulatory collapse [Fatal]
  - Multi-organ failure [Fatal]
  - Overdose [Fatal]
